FAERS Safety Report 8825097 (Version 1)
Quarter: 2012Q4

REPORT INFORMATION
  Report Type: 
  Country: US (occurrence: US)
  Receive Date: 20121004
  Receipt Date: 20121004
  Transmission Date: 20130627
  Serious: No
  Sender: FDA-Public Use
  Company Number: US-BAYER-2012-102472

PATIENT
  Age: 54 Year
  Sex: Female

DRUGS (2)
  1. CLIMARA [Suspect]
     Indication: MENOPAUSAL SYMPTOMS
     Dosage: UNK
     Route: 062
  2. ESTRADIOL [Concomitant]
     Route: 062

REACTIONS (3)
  - Hot flush [None]
  - Mood altered [None]
  - Product adhesion issue [None]
